FAERS Safety Report 14631471 (Version 1)
Quarter: 2018Q1

REPORT INFORMATION
  Report Type: Spontaneous
  Country: DE (occurrence: DE)
  Receive Date: 20180313
  Receipt Date: 20180313
  Transmission Date: 20180509
  Serious: Yes (Hospitalization, Other)
  Sender: FDA-Public Use
  Company Number: DE-IPSEN BIOPHARMACEUTICALS, INC.-2018-03737

PATIENT
  Age: 65 Year
  Sex: Male
  Weight: 104 kg

DRUGS (21)
  1. INNOHEP [Concomitant]
     Active Substance: TINZAPARIN SODIUM
  2. VICTOZA [Concomitant]
     Active Substance: LIRAGLUTIDE
  3. PANTENOL (DEXPANTHENOL) [Concomitant]
     Active Substance: DEXPANTHENOL
  4. AMARYL [Concomitant]
     Active Substance: GLIMEPIRIDE
  5. SPIRONOLACTON [Concomitant]
     Active Substance: SPIRONOLACTONE
  6. ASPIRIN. [Concomitant]
     Active Substance: ASPIRIN
  7. GLIBENCLAMID [Concomitant]
     Active Substance: GLYBURIDE
  8. XELODA [Suspect]
     Active Substance: CAPECITABINE
     Indication: COLORECTAL CANCER
     Dosage: 3300 TO 2500 MG
     Route: 048
     Dates: start: 20130919, end: 20131003
  9. FUROSEMID [Concomitant]
     Active Substance: FUROSEMIDE
  10. AVASTIN [Suspect]
     Active Substance: BEVACIZUMAB
     Indication: COLORECTAL CANCER METASTATIC
     Route: 042
     Dates: start: 20130919, end: 20131010
  11. TEPILTA [Concomitant]
     Active Substance: ALUMINUM HYDROXIDE\MAGNESIUM OXIDE\OXETHAZAINE
  12. LEVEMIR [Concomitant]
     Active Substance: INSULIN DETEMIR
  13. RAMIPRIL. [Concomitant]
     Active Substance: RAMIPRIL
     Dates: start: 20130919
  14. INSULIN [Concomitant]
     Active Substance: INSULIN NOS
  15. FENTANYL. [Concomitant]
     Active Substance: FENTANYL
  16. PEGYLATED LIPOSOMAL IRINOTECAN [Suspect]
     Active Substance: IRINOTECAN HYDROCHLORIDE
     Indication: OFF LABEL USE
  17. BELOC ZOK [Concomitant]
     Active Substance: METOPROLOL SUCCINATE
     Dates: start: 20130919
  18. PEGYLATED LIPOSOMAL IRINOTECAN [Suspect]
     Active Substance: IRINOTECAN HYDROCHLORIDE
     Indication: COLORECTAL CANCER
     Route: 042
     Dates: start: 20130919, end: 20131010
  19. PANTOZOL [Concomitant]
     Active Substance: PANTOPRAZOLE SODIUM
  20. DIGITOXIN [Concomitant]
     Active Substance: DIGITOXIN
  21. TOREM [Concomitant]
     Active Substance: TORSEMIDE

REACTIONS (7)
  - Stomatitis [Recovered/Resolved]
  - Hyperkalaemia [Recovered/Resolved]
  - Off label use [Unknown]
  - Dysphagia [Recovered/Resolved]
  - Acute kidney injury [Recovered/Resolved]
  - Pancytopenia [Recovered/Resolved]
  - General physical health deterioration [Recovered/Resolved]

NARRATIVE: CASE EVENT DATE: 20131017
